FAERS Safety Report 11585720 (Version 1)
Quarter: 2015Q4

REPORT INFORMATION
  Report Type: Spontaneous
  Country: US (occurrence: US)
  Receive Date: 20151001
  Receipt Date: 20151001
  Transmission Date: 20160304
  Serious: No
  Sender: FDA-Public Use
  Company Number: US-TEVA-596659ACC

PATIENT
  Age: 42 Year
  Sex: Female
  Weight: 57.66 kg

DRUGS (3)
  1. NEXIUM [Concomitant]
     Active Substance: ESOMEPRAZOLE MAGNESIUM
  2. SYNTHROID [Concomitant]
     Active Substance: LEVOTHYROXINE SODIUM
     Indication: HYPOTHYROIDISM
  3. PARAGARD T 380A [Suspect]
     Active Substance: COPPER
     Indication: CONTRACEPTION
     Route: 015
     Dates: start: 20150827, end: 20150922

REACTIONS (7)
  - Procedural pain [Unknown]
  - Device expulsion [Recovered/Resolved]
  - Pelvic pain [Unknown]
  - Abdominal pain lower [Unknown]
  - Back pain [Unknown]
  - Vaginal haemorrhage [Unknown]
  - Nausea [Unknown]

NARRATIVE: CASE EVENT DATE: 20150827
